FAERS Safety Report 4550973-1 (Version None)
Quarter: 2004Q4

REPORT INFORMATION
  Report Type: 
  Country: None (occurrence: None)
  Receive Date: 20041217
  Receipt Date: 20040820
  Transmission Date: 20050328
  Serious: No
  Sender: FDA-Public Use
  Company Number: 2004-BP-07085BP

PATIENT
  Age: 66 Year
  Sex: Male

DRUGS (7)
  1. SPIRIVA [Suspect]
     Indication: CHRONIC OBSTRUCTIVE AIRWAYS DISEASE
     Dosage: 18 MCG (18 MCG), IH
     Route: 055
     Dates: start: 20040601
  2. SPIRIVA HANDILAHER (TIOTROPIUM BROMIDE) [Suspect]
  3. PULMOZYME [Concomitant]
  4. PROTONIX [Concomitant]
  5. ZOLOFT [Concomitant]
  6. ALBUTEROL [Concomitant]
  7. AEROBID [Concomitant]

REACTIONS (1)
  - BLINDNESS UNILATERAL [None]
